FAERS Safety Report 8615059-5 (Version None)
Quarter: 2012Q3

REPORT INFORMATION
  Report Type: 
  Country: None (occurrence: None)
  Receive Date: 20120823
  Receipt Date: 20120821
  Transmission Date: 20120928
  Serious: Yes (Other)
  Sender: FDA-Public Use
  Company Number: GXKR2012DE002680

PATIENT

DRUGS (2)
  1. FLUVASTATIN [Suspect]
     Indication: HYPERCHOLESTEROLAEMIA
     Dosage: 20 MG, QD
     Route: 048
     Dates: start: 20100301, end: 20100501
  2. SIMVASTATIN [Suspect]
     Indication: HYPERCHOLESTEROLAEMIA
     Dosage: DAILY DOSE: 20-40 MG
     Route: 048
     Dates: end: 20100301

REACTIONS (3)
  - MYALGIA [None]
  - MUSCLE SPASMS [None]
  - RHABDOMYOLYSIS [None]
